FAERS Safety Report 6398859-4 (Version None)
Quarter: 2009Q4

REPORT INFORMATION
  Report Type: 
  Country: None (occurrence: None)
  Receive Date: 20091013
  Receipt Date: 20090929
  Transmission Date: 20100525
  Serious: Yes (Hospitalization)
  Sender: FDA-Public Use
  Company Number: GB-MYLANLABS-2009S1017210

PATIENT
  Age: 25 Year
  Sex: Male

DRUGS (7)
  1. AZATHIOPRINE [Suspect]
     Indication: DRUG USE FOR UNKNOWN INDICATION
     Dates: end: 20090501
  2. REMICADE [Suspect]
     Indication: CROHN'S DISEASE
     Route: 042
     Dates: start: 20081212
  3. REMICADE [Suspect]
     Route: 042
     Dates: start: 20090430
  4. REMICADE [Suspect]
     Route: 042
     Dates: start: 20090701
  5. ASACOL [Concomitant]
     Indication: DRUG USE FOR UNKNOWN INDICATION
     Route: 048
  6. HYDROCORTISONE [Concomitant]
     Indication: PREMEDICATION
  7. PREDNISOLONE [Concomitant]
     Indication: DRUG USE FOR UNKNOWN INDICATION
     Route: 048

REACTIONS (10)
  - CHEST DISCOMFORT [None]
  - CHILLS [None]
  - DYSPNOEA [None]
  - FEELING HOT [None]
  - FLUSHING [None]
  - HEADACHE [None]
  - HYPERHIDROSIS [None]
  - HYPOTENSION [None]
  - INFUSION RELATED REACTION [None]
  - LIVER FUNCTION TEST ABNORMAL [None]
